FAERS Safety Report 8833560 (Version 1)
Quarter: 2012Q4

REPORT INFORMATION
  Report Type: 
  Country: US (occurrence: US)
  Receive Date: 20121010
  Receipt Date: 20121010
  Transmission Date: 20130627
  Serious: Yes (Hospitalization)
  Sender: FDA-Public Use
  Company Number: US-MERCK-1210USA001847

PATIENT
  Age: 48 Year
  Sex: Male

DRUGS (2)
  1. JANUMET [Suspect]
     Indication: DIABETES MELLITUS
     Dosage: 50/1000
     Route: 048
     Dates: start: 20120718, end: 2012
  2. GLIPIZIDE [Concomitant]

REACTIONS (1)
  - Pancreatitis [Recovering/Resolving]
